FAERS Safety Report 21491902 (Version 1)
Quarter: 2022Q4

REPORT INFORMATION
  Report Type: Spontaneous
  Country: GB (occurrence: None)
  Receive Date: 20221021
  Receipt Date: 20221021
  Transmission Date: 20230113
  Serious: Yes (Death)
  Sender: FDA-Public Use
  Company Number: GB-ROCHE-3200731

PATIENT
  Age: 56 Year
  Sex: Male
  Weight: 82 kg

DRUGS (3)
  1. ALECTINIB [Suspect]
     Active Substance: ALECTINIB
     Indication: Anaplastic large-cell lymphoma
     Route: 048
     Dates: start: 20220112, end: 20220831
  2. ACYCLOVIR [Concomitant]
     Active Substance: ACYCLOVIR
     Dosage: HSV/VZV PROPHYLAXIS
     Route: 048
     Dates: start: 20210713, end: 20220831
  3. PENICILLIN V [Concomitant]
     Active Substance: PENICILLIN V
     Dosage: ANTIBIOTIC PROPHYLAXIS
     Route: 048
     Dates: start: 20210713, end: 20220831

REACTIONS (1)
  - Disease progression [Fatal]

NARRATIVE: CASE EVENT DATE: 20220716
